FAERS Safety Report 4495593-2 (Version None)
Quarter: 2004Q4

REPORT INFORMATION
  Report Type: 
  Country: None (occurrence: None)
  Receive Date: 20041108
  Receipt Date: 20041026
  Transmission Date: 20050328
  Serious: Yes (Hospitalization)
  Sender: FDA-Public Use
  Company Number: AU-BRISTOL-MYERS SQUIBB COMPANY-12746921

PATIENT
  Age: 91 Year
  Sex: Female

DRUGS (4)
  1. WARFARIN SODIUM [Suspect]
     Dates: end: 20040303
  2. FUROSEMIDE [Suspect]
     Dates: end: 20040303
  3. SPIRONOLACTONE [Suspect]
     Dates: end: 20040303
  4. COVERSYL [Suspect]
     Indication: CARDIAC FAILURE CONGESTIVE
     Dates: end: 20040303

REACTIONS (4)
  - CONFUSIONAL STATE [None]
  - DELIRIUM [None]
  - INTERNATIONAL NORMALISED RATIO INCREASED [None]
  - RENAL FAILURE ACUTE [None]
